FAERS Safety Report 7362454-0 (Version None)
Quarter: 2011Q1

REPORT INFORMATION
  Report Type: 
  Country: None (occurrence: None)
  Receive Date: 20110318
  Receipt Date: 20110314
  Transmission Date: 20110831
  Serious: Yes (Life-Threatening)
  Sender: FDA-Public Use
  Company Number: AU-B.I. PHARMACEUTICALS,INC./RIDGEFIELD-2011-AU-00066AU

PATIENT
  Sex: Male
  Weight: 86 kg

DRUGS (8)
  1. MOBIC [Suspect]
     Indication: METASTATIC PAIN
     Dosage: 7.5 MG
     Dates: start: 20101020, end: 20110121
  2. ACETAMINOPHEN [Concomitant]
  3. ATACAND [Suspect]
  4. BICALUTAMIDE [Concomitant]
  5. ASPIRIN [Concomitant]
  6. GOSERELIN [Concomitant]
  7. METOPROLOL SUCCINATE [Concomitant]
  8. PREGABALIN [Concomitant]

REACTIONS (1)
  - RENAL IMPAIRMENT [None]
